FAERS Safety Report 15471380 (Version 1)
Quarter: 2018Q4

REPORT INFORMATION
  Report Type: Spontaneous
  Country: US (occurrence: US)
  Receive Date: 20181007
  Receipt Date: 20181007
  Transmission Date: 20190205
  Serious: No
  Sender: FDA-Public Use
  Company Number: US-JNJFOC-20180910057

PATIENT
  Age: 68 Year
  Sex: Female
  Weight: 68.04 kg

DRUGS (2)
  1. ZYRTEC [Suspect]
     Active Substance: CETIRIZINE HYDROCHLORIDE
     Indication: PRURITUS
     Dosage: 1/2 TABLET PER DOSE, TWICE
     Route: 048
     Dates: start: 20180902
  2. ZYRTEC [Suspect]
     Active Substance: CETIRIZINE HYDROCHLORIDE
     Indication: PRURITUS
     Dosage: 10 MG (1 TABLET)
     Route: 048
     Dates: start: 20180903

REACTIONS (3)
  - Hypersomnia [Recovered/Resolved]
  - Insomnia [Recovered/Resolved]
  - Wrong technique in product usage process [Unknown]

NARRATIVE: CASE EVENT DATE: 20180902
